FAERS Safety Report 14498368 (Version 2)
Quarter: 2018Q1

REPORT INFORMATION
  Report Type: Report from Study
  Country: CA (occurrence: CA)
  Receive Date: 20180207
  Receipt Date: 20180309
  Transmission Date: 20180509
  Serious: Yes (Hospitalization, Other)
  Sender: FDA-Public Use
  Company Number: CA-JNJFOC-20170927448

PATIENT
  Age: 53 Year
  Sex: Male
  Weight: 85 kg

DRUGS (1)
  1. REMICADE [Suspect]
     Active Substance: INFLIXIMAB
     Indication: CROHN^S DISEASE
     Route: 042
     Dates: start: 20150202

REACTIONS (7)
  - Product use issue [Unknown]
  - Off label use [Unknown]
  - Squamous cell carcinoma of skin [Recovering/Resolving]
  - Anaemia [Unknown]
  - Gastrointestinal ulcer haemorrhage [Not Recovered/Not Resolved]
  - Intestinal obstruction [Recovered/Resolved]
  - Weight decreased [Unknown]

NARRATIVE: CASE EVENT DATE: 20150202
